FAERS Safety Report 5492356-6 (Version None)
Quarter: 2007Q4

REPORT INFORMATION
  Report Type: 
  Country: None (occurrence: None)
  Receive Date: 20071015
  Receipt Date: 20070719
  Transmission Date: 20080405
  Serious: No
  Sender: FDA-Public Use
  Company Number: 2007SP002576

PATIENT
  Age: 59 Year
  Sex: Female
  Weight: 83.9154 kg

DRUGS (5)
  1. LUNESTA [Suspect]
     Indication: INSOMNIA
     Dosage: 3 MG; HS; ORAL
     Route: 048
     Dates: start: 20070716
  2. FEMARA [Concomitant]
  3. TIAZAC [Concomitant]
  4. MAXZIDE [Concomitant]
  5. LEXAPRO [Concomitant]

REACTIONS (1)
  - INITIAL INSOMNIA [None]
